FAERS Safety Report 21968420 (Version 1)
Quarter: 2023Q1

REPORT INFORMATION
  Report Type: Report from Study
  Country: US (occurrence: US)
  Receive Date: 20230208
  Receipt Date: 20230208
  Transmission Date: 20230418
  Serious: No
  Sender: FDA-Public Use
  Company Number: US-INCYTE CORPORATION-2022IN012896

PATIENT

DRUGS (1)
  1. JAKAFI [Suspect]
     Active Substance: RUXOLITINIB
     Indication: Myeloproliferative neoplasm
     Dosage: 5 MILLIGRAM (TAKE 2 TABLETS IN MORNING AND 1 TABLET AT NIGHT)
     Route: 065

REACTIONS (9)
  - Product availability issue [Unknown]
  - Pruritus [Unknown]
  - Poor quality sleep [Unknown]
  - Contusion [Unknown]
  - Scratch [Unknown]
  - Hyperhidrosis [Unknown]
  - Hot flush [Unknown]
  - Feeling cold [Unknown]
  - Off label use [Unknown]
